FAERS Safety Report 8632448 (Version 2)
Quarter: 2013Q1

REPORT INFORMATION
  Report Type: Spontaneous
  Country: US (occurrence: US)
  Receive Date: 20120625
  Receipt Date: 20130215
  Transmission Date: 20140127
  Serious: Yes (Life-Threatening, Hospitalization, Other)
  Sender: FDA-Public Use
  Company Number: US-BAYER-2012-061295

PATIENT
  Age: 41 Year
  Sex: Female
  Weight: 52 kg

DRUGS (7)
  1. YASMIN [Suspect]
     Indication: ACNE
     Dosage: UNK
     Dates: start: 200608, end: 200611
  2. YAZ [Suspect]
     Indication: ACNE
     Dosage: UNK
     Dates: start: 200611, end: 200612
  3. MINOCYCLINE [Concomitant]
     Indication: ACNE
     Dosage: 100 MG, UNK
     Route: 048
     Dates: start: 20061101
  4. ALBUTEROL [Concomitant]
     Dosage: 90 MCG
     Dates: start: 20061122
  5. PROPOXYPHENE-APAP [Concomitant]
     Dosage: UNK
     Dates: start: 20061222
  6. CLARITIN D [Concomitant]
     Dosage: UNK, AS NEEDED
  7. IMITREX [Concomitant]
     Dosage: UNK, AS NEEDED

REACTIONS (10)
  - Cerebrovascular accident [Recovering/Resolving]
  - Injury [Recovering/Resolving]
  - Pain [Recovering/Resolving]
  - General physical health deterioration [Recovering/Resolving]
  - Mental impairment [None]
  - Anxiety [None]
  - Emotional distress [None]
  - Anhedonia [None]
  - Pain [None]
  - Off label use [None]
